FAERS Safety Report 6078454-7 (Version None)
Quarter: 2009Q1

REPORT INFORMATION
  Report Type: 
  Country: None (occurrence: None)
  Receive Date: 20090212
  Receipt Date: 20090212
  Transmission Date: 20090719
  Serious: Yes (Disabling, Other)
  Sender: FDA-Public Use
  Company Number: None

PATIENT
  Age: 67 Year
  Sex: Female
  Weight: 72.5755 kg

DRUGS (1)
  1. COREG CR [Suspect]
     Indication: HYPERTENSION
     Dosage: ONE CASULE 1TIME/DAY PO
     Route: 048
     Dates: start: 20081201, end: 20090115

REACTIONS (8)
  - ABDOMINAL DISCOMFORT [None]
  - ABDOMINAL DISTENSION [None]
  - CONSTIPATION [None]
  - DIARRHOEA [None]
  - DISCOMFORT [None]
  - IMPAIRED GASTRIC EMPTYING [None]
  - NAUSEA [None]
  - REGURGITATION [None]
